FAERS Safety Report 7807159-4 (Version None)
Quarter: 2011Q4

REPORT INFORMATION
  Report Type: 
  Country: None (occurrence: None)
  Receive Date: 20111011
  Receipt Date: 20110927
  Transmission Date: 20120403
  Serious: Yes (Other)
  Sender: FDA-Public Use
  Company Number: PHHY2010US87492

PATIENT
  Sex: Male

DRUGS (6)
  1. OXYCHLOROSENE [Concomitant]
     Indication: PAIN
     Dosage: 40 MG, BID
  2. TASIGNA [Suspect]
     Indication: LEUKAEMIA
     Dosage: 400 MG, BID
     Route: 048
  3. IBUPROFEN (ADVIL) [Suspect]
     Indication: PAIN
     Dosage: 200 MG, UNK
     Route: 048
  4. CLONOPIN [Concomitant]
     Dosage: 1 MG, TID
  5. IBUPROFEN [Suspect]
     Indication: PAIN
     Dosage: 2 DF, QD
  6. PREVACID [Concomitant]
     Indication: GASTRIC ULCER
     Dosage: 30 MG, DAILY

REACTIONS (8)
  - ABDOMINAL PAIN [None]
  - GASTRIC ULCER [None]
  - VOMITING [None]
  - DIARRHOEA [None]
  - MALAISE [None]
  - RECTAL HAEMORRHAGE [None]
  - HAEMATEMESIS [None]
  - HAEMATOCHEZIA [None]
